FAERS Safety Report 8076668-8 (Version None)
Quarter: 2012Q1

REPORT INFORMATION
  Report Type: 
  Country: None (occurrence: None)
  Receive Date: 20120125
  Receipt Date: 20120125
  Transmission Date: 20120608
  Serious: Yes (Hospitalization)
  Sender: FDA-Public Use
  Company Number: None

PATIENT

DRUGS (1)
  1. NICARDIPINE HYDROCHLORIDE [Suspect]
     Dosage: SINGLE DOSE VIAL 10 X 10 ML SINGLE DOSE VIALS

REACTIONS (2)
  - DRUG LABEL CONFUSION [None]
  - MEDICATION ERROR [None]
